FAERS Safety Report 10224897 (Version 1)
Quarter: 2014Q2

REPORT INFORMATION
  Report Type: Spontaneous
  Country: CN (occurrence: CN)
  Receive Date: 20140609
  Receipt Date: 20140609
  Transmission Date: 20141212
  Serious: Yes (Hospitalization)
  Sender: FDA-Public Use
  Company Number: CN-GLAXOSMITHKLINE-B1001472A

PATIENT
  Age: 84 Year
  Sex: Female
  Weight: 50 kg

DRUGS (2)
  1. ZINACEF [Suspect]
     Indication: INFECTION
     Dosage: 1.5G TWICE PER DAY
     Route: 042
     Dates: start: 20130618, end: 20130618
  2. ASPIRIN [Concomitant]
     Indication: PRODUCT USED FOR UNKNOWN INDICATION
     Route: 042
     Dates: start: 20130618

REACTIONS (1)
  - Dyspnoea [Recovering/Resolving]
